FAERS Safety Report 9380150 (Version 4)
Quarter: 2013Q3

REPORT INFORMATION
  Report Type: Report from Study
  Country: US (occurrence: US)
  Receive Date: 20130702
  Receipt Date: 20130903
  Transmission Date: 20140515
  Serious: Yes (Other)
  Sender: FDA-Public Use
  Company Number: US-TEVA-416057USA

PATIENT
  Age: 18 Year
  Sex: Female

DRUGS (2)
  1. CLARAVIS [Suspect]
     Dosage: 30 MILLIGRAM DAILY;
     Dates: start: 20130606, end: 20130624
  2. CILEST [Concomitant]

REACTIONS (1)
  - Unintended pregnancy [Unknown]
